FAERS Safety Report 10249333 (Version 1)
Quarter: 2014Q2

REPORT INFORMATION
  Report Type: Spontaneous
  Country: US (occurrence: None)
  Receive Date: 20140619
  Receipt Date: 20140619
  Transmission Date: 20141212
  Serious: Yes (Hospitalization)
  Sender: FDA-Public Use
  Company Number: None

PATIENT
  Age: 20 Year
  Sex: Female
  Weight: 56.7 kg

DRUGS (1)
  1. LEUPROLIDE ACETATE [Suspect]
     Indication: ENDOMETRIOSIS
     Dosage: USE AS DIRECTED FOR 30DAYS  ONCE A MONTH INTO THE MUSCLE?JUST HAD ONE MONTH INJECTION
     Route: 030

REACTIONS (2)
  - Dizziness [None]
  - Nausea [None]
